FAERS Safety Report 21621138 (Version 1)
Quarter: 2022Q4

REPORT INFORMATION
  Report Type: Report from Study
  Country: SE (occurrence: SE)
  Receive Date: 20221121
  Receipt Date: 20221121
  Transmission Date: 20230112
  Serious: Yes (Other)
  Sender: FDA-Public Use
  Company Number: SE-ABBVIE-4207367

PATIENT
  Sex: Female

DRUGS (3)
  1. CARBIDOPA\LEVODOPA [Suspect]
     Active Substance: CARBIDOPA\LEVODOPA
     Indication: Parkinson^s disease
     Dosage: CURRENT DOSAGES: MORNING DOSE 8 ML. CONTINUOUS DOSE 3.1 ML/H. EXTRA DOSE 1.2 ML
     Route: 050
     Dates: start: 20221117
  2. CARBIDOPA\LEVODOPA [Suspect]
     Active Substance: CARBIDOPA\LEVODOPA
     Dosage: THERAPY DURATION: REMAINS AT 16 HOURS.?TAKES 1-3 EXTRA DOSES PER DAY.
     Route: 050
     Dates: start: 20211013
  3. LEVETIRACETAM [Concomitant]
     Active Substance: LEVETIRACETAM
     Indication: Petit mal epilepsy

REACTIONS (6)
  - Petit mal epilepsy [Not Recovered/Not Resolved]
  - Pain [Unknown]
  - Fall [Recovering/Resolving]
  - Head injury [Recovering/Resolving]
  - Eyelid haematoma [Unknown]
  - Chest injury [Recovering/Resolving]

NARRATIVE: CASE EVENT DATE: 20220101
